FAERS Safety Report 10157091 (Version 4)
Quarter: 2016Q4

REPORT INFORMATION
  Report Type: Spontaneous
  Country: US (occurrence: US)
  Receive Date: 20140507
  Receipt Date: 20161004
  Transmission Date: 20170206
  Serious: Yes (Hospitalization, Other)
  Sender: FDA-Public Use
  Company Number: US-AMGEN INC.-USASP2014032694

PATIENT
  Age: 56 Year
  Sex: Female

DRUGS (3)
  1. ENBREL [Suspect]
     Active Substance: ETANERCEPT
     Indication: RHEUMATOID ARTHRITIS
     Dosage: 50 MG, ONCE WEEKLY
     Route: 065
     Dates: start: 20090801
  2. HUMIRA [Suspect]
     Active Substance: ADALIMUMAB
     Indication: PRODUCT USED FOR UNKNOWN INDICATION
     Dosage: UNK
     Route: 065
  3. VENLAFAXINE [Suspect]
     Active Substance: VENLAFAXINE HYDROCHLORIDE
     Indication: PRODUCT USED FOR UNKNOWN INDICATION
     Dosage: 37.5 MG, QD
     Route: 065

REACTIONS (44)
  - Ankle fracture [Unknown]
  - Respiratory disorder [Not Recovered/Not Resolved]
  - Fatigue [Not Recovered/Not Resolved]
  - Device extrusion [Recovered/Resolved]
  - Pain in extremity [Not Recovered/Not Resolved]
  - Coordination abnormal [Unknown]
  - Foot deformity [Unknown]
  - Musculoskeletal stiffness [Unknown]
  - Pain [Unknown]
  - Joint swelling [Unknown]
  - Gait disturbance [Unknown]
  - Respiratory tract infection [Unknown]
  - Herpes simplex [Not Recovered/Not Resolved]
  - Impaired healing [Recovered/Resolved]
  - Bronchitis [Unknown]
  - Fall [Unknown]
  - Hand deformity [Not Recovered/Not Resolved]
  - Ankle operation [Unknown]
  - Joint stiffness [Not Recovered/Not Resolved]
  - Vomiting [Recovered/Resolved]
  - Erythema [Recovered/Resolved]
  - Glycosylated haemoglobin increased [Not Recovered/Not Resolved]
  - Swelling [Recovered/Resolved]
  - Nausea [Recovered/Resolved]
  - Dyspnoea [Not Recovered/Not Resolved]
  - Condition aggravated [Unknown]
  - Drug dose omission [Unknown]
  - Injection site pain [Not Recovered/Not Resolved]
  - Paraesthesia [Not Recovered/Not Resolved]
  - Disability [Unknown]
  - Pruritus [Not Recovered/Not Resolved]
  - Malaise [Recovered/Resolved]
  - Mobility decreased [Unknown]
  - Finger deformity [Not Recovered/Not Resolved]
  - Arthralgia [Recovered/Resolved]
  - Flatulence [Not Recovered/Not Resolved]
  - Local swelling [Not Recovered/Not Resolved]
  - Blood glucose abnormal [Not Recovered/Not Resolved]
  - Weight bearing difficulty [Unknown]
  - Productive cough [Recovered/Resolved]
  - Hypersensitivity [Unknown]
  - Dysstasia [Unknown]
  - Nasopharyngitis [Recovered/Resolved]
  - Disturbance in attention [Unknown]

NARRATIVE: CASE EVENT DATE: 20090801
